FAERS Safety Report 7383858 (Version 4)
Quarter: 2020Q3

REPORT INFORMATION
  Report Type: Report from Study
  Country: JP (occurrence: JP)
  Receive Date: 20100511
  Receipt Date: 20100607
  Transmission Date: 20201104
  Serious: Yes (Death, Life-Threatening, Hospitalization)
  Sender: FDA-Public Use
  Company Number: JP-WYE-H14986410

PATIENT
  Age: 65 Year
  Sex: Female
  Weight: 47.5 kg

DRUGS (11)
  1. EPINASTINE HYDROCHLORIDE. [Suspect]
     Active Substance: EPINASTINE HYDROCHLORIDE
     Indication: RASH
     Dosage: UNKNOWN
     Dates: start: 20100427, end: 20100505
  2. TRASTUZUMAB. [Suspect]
     Active Substance: TRASTUZUMAB
     Indication: BREAST CANCER
     Route: 042
     Dates: start: 20100406, end: 20100406
  3. FLUVASTATIN [Concomitant]
     Active Substance: FLUVASTATIN SODIUM
     Indication: HYPERLIPIDAEMIA
     Dosage: UNKNOWN
     Dates: start: 200308, end: 20100518
  4. LOXOPROFEN SODIUM [Concomitant]
     Active Substance: LOXOPROFEN SODIUM
     Indication: BACK PAIN
     Dosage: UNKNOWN
     Dates: start: 200806, end: 20100519
  5. BETAMETHASONE VALERATE. [Concomitant]
     Active Substance: BETAMETHASONE VALERATE
     Indication: RASH
     Dosage: UNKNOWN
     Dates: start: 20100427, end: 20100505
  6. RABEPRAZOLE [Concomitant]
     Active Substance: RABEPRAZOLE
     Indication: GASTRITIS
     Dosage: UNKNOWN
     Dates: start: 2005, end: 20100517
  7. AZELNIDIPINE [Suspect]
     Active Substance: AZELNIDIPINE
     Indication: HYPERTENSION
     Dosage: UNKNOWN
     Dates: start: 20100413, end: 20100519
  8. METHYLCOBALAMIN. [Concomitant]
     Active Substance: METHYLCOBALAMIN
     Indication: NUTRITIONAL SUPPLEMENTATION
     Dosage: UNKNOWN
     Dates: start: 200308, end: 20100506
  9. TRASTUZUMAB. [Suspect]
     Active Substance: TRASTUZUMAB
     Route: 042
     Dates: start: 20100413, end: 20100427
  10. PACLITAXEL. [Suspect]
     Active Substance: PACLITAXEL
     Indication: BREAST CANCER
     Dosage: 80MG/M^2 DAYS 1,8,15 OF 28 DAY CYCLE
     Route: 042
     Dates: start: 20100406, end: 20100420
  11. VALSARTAN. [Suspect]
     Active Substance: VALSARTAN
     Indication: HYPERTENSION
     Dosage: UNKNOWN
     Dates: start: 20100413, end: 20100518

REACTIONS (1)
  - Pneumonitis [Fatal]

NARRATIVE: CASE EVENT DATE: 20100505
